FAERS Safety Report 16479726 (Version 1)
Quarter: 2019Q2

REPORT INFORMATION
  Report Type: Spontaneous
  Country: CH (occurrence: CH)
  Receive Date: 20190626
  Receipt Date: 20190626
  Transmission Date: 20190711
  Serious: Yes (Life-Threatening)
  Sender: FDA-Public Use
  Company Number: CH-BAYER-2019-120011

PATIENT
  Age: 56 Year
  Sex: Male

DRUGS (33)
  1. RIFAMPICIN [Suspect]
     Active Substance: RIFAMPIN
     Dosage: 600 MG, UNK
     Route: 048
     Dates: start: 20190426
  2. TEMESTA EXPIDET [Suspect]
     Active Substance: LORAZEPAM
     Dosage: 1 MG, UNK
     Route: 048
     Dates: start: 20190515
  3. VITAMIN B6 [Concomitant]
     Active Substance: PYRIDOXINE HYDROCHLORIDE
  4. NOVORAPID [Concomitant]
     Active Substance: INSULIN ASPART
     Dosage: UNK, PRN; AS NECESSARY;
  5. PREDNISONE. [Suspect]
     Active Substance: PREDNISONE
     Dosage: 30 MG, UNK
     Route: 048
     Dates: start: 20190611, end: 20190614
  6. HALDOL [Suspect]
     Active Substance: HALOPERIDOL
     Dosage: 0.5 MG, UNK; MAX 1X/D ; AS NECESSARY;
     Route: 048
     Dates: start: 20190510
  7. TEMESTA EXPIDET [Suspect]
     Active Substance: LORAZEPAM
     Dosage: 2.5 MG, UNK
     Route: 048
     Dates: start: 20190515
  8. INSULATARD HM [Concomitant]
     Active Substance: INSULIN HUMAN
  9. ZOLPIDEM [Concomitant]
     Active Substance: ZOLPIDEM\ZOLPIDEM TARTRATE
  10. BECOZYME [VITAMIN B COMPLEX] [Concomitant]
  11. PREDNISONE. [Suspect]
     Active Substance: PREDNISONE
     Dosage: 1 DF
     Route: 048
     Dates: start: 20190614
  12. HALDOL [Suspect]
     Active Substance: HALOPERIDOL
     Dosage: 1 MG, UNK
     Route: 048
     Dates: start: 20190510
  13. COVERSUM N [Suspect]
     Active Substance: PERINDOPRIL
     Dosage: 10 MG, UNK
     Route: 048
     Dates: start: 20190507
  14. TRITTICO [Concomitant]
     Active Substance: TRAZODONE HYDROCHLORIDE
  15. CALCIMAGON D3 [Concomitant]
     Active Substance: CALCIUM\CHOLECALCIFEROL
  16. MYAMBUTOL [Suspect]
     Active Substance: ETHAMBUTOL HYDROCHLORIDE
     Dosage: 900 MG, UNK
     Route: 048
     Dates: start: 20190426
  17. PREDNISONE. [Suspect]
     Active Substance: PREDNISONE
     Dosage: UNK
     Route: 048
     Dates: start: 20190426, end: 20190611
  18. ESOMEPRAZOLE. [Suspect]
     Active Substance: ESOMEPRAZOLE MAGNESIUM
     Dosage: 40 MG, UNK
     Route: 042
     Dates: start: 20190507
  19. TEMGESIC [Suspect]
     Active Substance: BUPRENORPHINE HYDROCHLORIDE
     Dosage: 0.1 MG, UNK; 3X/D MAX ; AS NECESSARY;
     Route: 060
     Dates: start: 20190519
  20. CALCIUM CARBONATE. [Concomitant]
     Active Substance: CALCIUM CARBONATE
  21. NEPHROTRANS [Concomitant]
     Active Substance: SODIUM BICARBONATE
  22. IMODIUM [Concomitant]
     Active Substance: LOPERAMIDE HYDROCHLORIDE
     Dosage: UNK, PRN; AS NECESSARY;
  23. ISONIAZIDE [Suspect]
     Active Substance: ISONIAZID
     Dosage: 250 MG, UNK
     Route: 048
     Dates: start: 20190429
  24. TORASEMIDE [Suspect]
     Active Substance: TORSEMIDE
     Dosage: 40 MG, UNK
     Route: 048
     Dates: start: 20190426
  25. TEMGESIC [Suspect]
     Active Substance: BUPRENORPHINE HYDROCHLORIDE
     Dosage: 0.1 MG, UNK; 3X/D MAX.;
     Route: 060
     Dates: start: 20190519
  26. CREON [Concomitant]
     Active Substance: PANCRELIPASE AMYLASE\PANCRELIPASE LIPASE\PANCRELIPASE PROTEASE
  27. ACIDUM FOLICUM [Concomitant]
     Active Substance: FOLIC ACID
  28. DAFALGAN [Concomitant]
     Active Substance: ACETAMINOPHEN
     Dosage: UNK, PRN; AS NECESSARY;
  29. AVALOX [Suspect]
     Active Substance: MOXIFLOXACIN HYDROCHLORIDE
     Dosage: 400 MG, UNK
     Route: 048
     Dates: start: 20190426
  30. TEMESTA EXPIDET [Suspect]
     Active Substance: LORAZEPAM
     Dosage: UNK UNK, PRN
     Route: 048
     Dates: start: 20190515
  31. ARANESP [Concomitant]
     Active Substance: DARBEPOETIN ALFA
  32. SOLIAN [Concomitant]
     Active Substance: AMISULPRIDE
  33. BIOFLORINA [Concomitant]

REACTIONS (1)
  - Metabolic acidosis [Not Recovered/Not Resolved]

NARRATIVE: CASE EVENT DATE: 20190520
